FAERS Safety Report 11756930 (Version 5)
Quarter: 2018Q2

REPORT INFORMATION
  Report Type: Spontaneous
  Country: US (occurrence: US)
  Receive Date: 20151120
  Receipt Date: 20180427
  Transmission Date: 20180711
  Serious: Yes (Hospitalization, Other)
  Sender: FDA-Public Use
  Company Number: US-PFIZER INC-2015386167

PATIENT
  Age: 62 Year
  Sex: Male
  Weight: 82.54 kg

DRUGS (14)
  1. LYRICA [Suspect]
     Active Substance: PREGABALIN
     Dosage: 150 MG, DAILY
     Dates: start: 201803
  2. LYRICA [Suspect]
     Active Substance: PREGABALIN
     Dosage: 150 MG, 3X/DAY
     Route: 048
  3. CLONAZEPAM. [Concomitant]
     Active Substance: CLONAZEPAM
     Indication: NEUROPATHY PERIPHERAL
  4. VIMPAT [Concomitant]
     Active Substance: LACOSAMIDE
     Dosage: UNK
  5. LYRICA [Suspect]
     Active Substance: PREGABALIN
     Indication: NERVE INJURY
     Dosage: 150 MG, 2X/DAY
     Route: 048
     Dates: start: 201404
  6. CLONAZEPAM. [Concomitant]
     Active Substance: CLONAZEPAM
     Indication: SEIZURE
     Dosage: 1 MG, 2X/DAY
  7. CLOPIDOGREL [Concomitant]
     Active Substance: CLOPIDOGREL BISULFATE
     Indication: ANTICOAGULANT THERAPY
     Dosage: 75 MG, DAILY
     Route: 048
     Dates: start: 201804
  8. ROSUVASTATIN. [Concomitant]
     Active Substance: ROSUVASTATIN
     Indication: BLOOD CHOLESTEROL
     Dosage: 5 MG, 1X/DAY
     Route: 048
     Dates: start: 20180321
  9. VIMPAT [Concomitant]
     Active Substance: LACOSAMIDE
     Dosage: 200 MG, 2X/DAY
     Route: 048
  10. LYRICA [Suspect]
     Active Substance: PREGABALIN
     Indication: PAIN
     Dosage: 150 MG, 3X/DAY
     Route: 048
  11. VIMPAT [Concomitant]
     Active Substance: LACOSAMIDE
     Indication: EPILEPSY
     Dosage: 250 MG, 2X/DAY
     Route: 048
  12. TEGRETOL [Concomitant]
     Active Substance: CARBAMAZEPINE
     Dosage: UNK
  13. LYRICA [Suspect]
     Active Substance: PREGABALIN
     Indication: NEUROPATHY PERIPHERAL
     Dosage: 150 MG, TWICE DAILY
     Route: 048
     Dates: start: 2013
  14. LYRICA [Suspect]
     Active Substance: PREGABALIN
     Dosage: 150 MG, 2X/DAY
     Dates: start: 201803

REACTIONS (21)
  - Vomiting [Unknown]
  - Lung disorder [Not Recovered/Not Resolved]
  - Peripheral arterial occlusive disease [Not Recovered/Not Resolved]
  - Liver disorder [Not Recovered/Not Resolved]
  - Malaise [Unknown]
  - Formication [Not Recovered/Not Resolved]
  - Gait disturbance [Unknown]
  - Off label use [Unknown]
  - Cardio-respiratory arrest [Unknown]
  - Memory impairment [Unknown]
  - Intentional product use issue [Unknown]
  - Seizure [Unknown]
  - Chronic obstructive pulmonary disease [Not Recovered/Not Resolved]
  - Arterial occlusive disease [Unknown]
  - Condition aggravated [Not Recovered/Not Resolved]
  - Pneumonia [Unknown]
  - Burning sensation [Not Recovered/Not Resolved]
  - Obstructive airways disorder [Unknown]
  - Fall [Not Recovered/Not Resolved]
  - Foreign body aspiration [Unknown]
  - Gait inability [Not Recovered/Not Resolved]

NARRATIVE: CASE EVENT DATE: 201504
